FAERS Safety Report 22350372 (Version 5)
Quarter: 2024Q4

REPORT INFORMATION
  Report Type: Report from Study
  Country: US (occurrence: US)
  Receive Date: 20230522
  Receipt Date: 20241226
  Transmission Date: 20250115
  Serious: Yes (Hospitalization)
  Sender: PFIZER
  Company Number: US-PFIZER INC-US-GBT-22-01423

PATIENT
  Age: 51 Year
  Sex: Female

DRUGS (13)
  1. VOXELOTOR [Suspect]
     Active Substance: VOXELOTOR
     Indication: Sickle cell disease
     Dosage: 1500 MG, QD
     Route: 048
     Dates: start: 20200529, end: 20200531
  2. VOXELOTOR [Suspect]
     Active Substance: VOXELOTOR
     Dosage: 500 MG, QD
     Route: 048
     Dates: start: 20200715, end: 20200729
  3. VOXELOTOR [Suspect]
     Active Substance: VOXELOTOR
     Dosage: 1000 MG, QD
     Route: 048
     Dates: start: 20200730, end: 20210312
  4. VOXELOTOR [Suspect]
     Active Substance: VOXELOTOR
     Dosage: 1000 MG, QD
     Route: 048
     Dates: start: 20210409, end: 20210420
  5. VOXELOTOR [Suspect]
     Active Substance: VOXELOTOR
     Dosage: 500 MG, QD
     Route: 048
     Dates: start: 20211021, end: 20211022
  6. VITAMIN D3 [Concomitant]
     Active Substance: CHOLECALCIFEROL
     Indication: Sickle cell disease
     Dosage: 50 UG, 1X/DAY
     Route: 048
     Dates: start: 20160511
  7. ACETAMINOPHEN-CODEINE(TYLENOLE CODEINE) [Concomitant]
     Indication: Sickle cell disease
     Dosage: 300-30MG
     Route: 048
     Dates: start: 20140930
  8. FERROUS SULFATE [Concomitant]
     Active Substance: FERROUS SULFATE
     Indication: Sickle cell disease
     Dosage: 300 MG, 1X/DAY
     Route: 048
     Dates: start: 20201015
  9. FOLIC ACID [Concomitant]
     Active Substance: FOLIC ACID
     Indication: Sickle cell disease
     Dosage: 1 MG, 1X/DAY
     Route: 048
     Dates: start: 20101109
  10. LASIX [Concomitant]
     Active Substance: FUROSEMIDE
     Indication: Sickle cell disease
     Dosage: 20 MG, 1X/DAY
     Route: 048
     Dates: start: 20191203
  11. METOPROLOL(LOPRESSOR) [Concomitant]
     Dosage: UNK UNK, 1X/DAY
     Route: 048
     Dates: start: 20171018
  12. SODIUM BICARBONATE [Concomitant]
     Active Substance: SODIUM BICARBONATE
     Dosage: 650 MG
     Dates: start: 20160909
  13. SODIUM POLYSTYRENE SULFONATE [Concomitant]
     Active Substance: SODIUM POLYSTYRENE SULFONATE
     Dosage: 15 MG, 1X/DAY
     Route: 048
     Dates: start: 20170120

REACTIONS (2)
  - Alanine aminotransferase increased [Recovered/Resolved]
  - Pyrexia [Recovered/Resolved]

NARRATIVE: CASE EVENT DATE: 20211022
